FAERS Safety Report 9882538 (Version 2)
Quarter: 2014Q1

REPORT INFORMATION
  Report Type: Spontaneous
  Country: US (occurrence: US)
  Receive Date: 20140207
  Receipt Date: 20140316
  Transmission Date: 20141002
  Serious: Yes (Hospitalization, Other)
  Sender: FDA-Public Use
  Company Number: US-BAYER-2014-016361

PATIENT
  Age: 71 Year
  Sex: Female

DRUGS (3)
  1. CIPRO [Suspect]
     Indication: BRONCHITIS
     Dosage: UNK
     Dates: start: 201311
  2. COPAXONE [Suspect]
     Indication: MULTIPLE SCLEROSIS
     Dosage: UNK
     Dates: start: 20041019
  3. PREDNISONE [Concomitant]
     Dosage: UNK
     Dates: start: 20131215

REACTIONS (2)
  - Renal disorder [None]
  - Rash [None]
